FAERS Safety Report 17646470 (Version 3)
Quarter: 2020Q2

REPORT INFORMATION
  Report Type: Spontaneous
  Country: US (occurrence: US)
  Receive Date: 20200408
  Receipt Date: 20200519
  Transmission Date: 20200713
  Serious: No
  Sender: FDA-Public Use
  Company Number: US-VERTEX PHARMACEUTICALS-2020-003731

PATIENT
  Age: 22 Year
  Sex: Female

DRUGS (1)
  1. TRIKAFTA [Suspect]
     Active Substance: ELEXACAFTOR\IVACAFTOR\TEZACAFTOR
     Indication: CYSTIC FIBROSIS
     Dosage: (100MG/50MG/75MG; 150MG) TAKES MORNING DOSE, SKIPS EVENING DOSE
     Route: 048
     Dates: start: 201911

REACTIONS (3)
  - Blood bilirubin increased [Unknown]
  - Paranasal sinus hypersecretion [Unknown]
  - Productive cough [Unknown]

NARRATIVE: CASE EVENT DATE: 201911
